FAERS Safety Report 4595120-5 (Version None)
Quarter: 2005Q1

REPORT INFORMATION
  Report Type: 
  Country: None (occurrence: None)
  Receive Date: 20050225
  Receipt Date: 20050211
  Transmission Date: 20050727
  Serious: Yes (Hospitalization)
  Sender: FDA-Public Use
  Company Number: CERZ-10787

PATIENT
  Age: 60 Year
  Sex: Male
  Weight: 116.8 kg

DRUGS (3)
  1. CEREZYME [Suspect]
     Indication: GAUCHER'S DISEASE
     Dosage: 60 U/KG Q3WKS IV
     Route: 042
     Dates: start: 20011201, end: 20050209
  2. MICRONASE [Concomitant]
  3. LIPITOR [Concomitant]

REACTIONS (4)
  - ANGINA UNSTABLE [None]
  - CHEST PAIN [None]
  - CORONARY ARTERY DISEASE [None]
  - DYSPNOEA [None]
